FAERS Safety Report 10047095 (Version 3)
Quarter: 2014Q2

REPORT INFORMATION
  Report Type: Spontaneous
  Country: CZ (occurrence: CZ)
  Receive Date: 20140331
  Receipt Date: 20140606
  Transmission Date: 20141212
  Serious: Yes (Death, Hospitalization)
  Sender: FDA-Public Use
  Company Number: CZ-JNJFOC-20140313620

PATIENT
  Sex: Male

DRUGS (6)
  1. ZYTIGA [Suspect]
     Indication: PROSTATE CANCER
     Dosage: 6 CYCLES
     Route: 048
     Dates: start: 20131016, end: 20140303
  2. SIOFOR [Concomitant]
     Route: 048
     Dates: start: 201305
  3. PREDNISONE [Concomitant]
     Route: 048
     Dates: start: 20131016
  4. ZOMETA [Concomitant]
     Route: 042
     Dates: start: 20120906
  5. METFORMIN HYDROCHLORIDE [Concomitant]
     Route: 065
  6. ZOLEDRONIC ACID [Concomitant]
     Route: 065

REACTIONS (5)
  - Death [Fatal]
  - Haematuria [Unknown]
  - Haematoma [Unknown]
  - Disease progression [Unknown]
  - Pancytopenia [Unknown]
